FAERS Safety Report 25279091 (Version 1)
Quarter: 2025Q2

REPORT INFORMATION
  Report Type: Spontaneous
  Country: US (occurrence: None)
  Receive Date: 20250507
  Receipt Date: 20250507
  Transmission Date: 20250716
  Serious: Yes (Other)
  Sender: INCYTE
  Company Number: US-INCYTE CORPORATION-2025IN004879

PATIENT
  Age: 76 Year

DRUGS (1)
  1. JAKAFI [Suspect]
     Active Substance: RUXOLITINIB
     Indication: Malignant lymphoid neoplasm
     Dosage: 10 MILLIGRAM, BID

REACTIONS (3)
  - Basal cell carcinoma [Unknown]
  - White blood cell count increased [Recovering/Resolving]
  - Off label use [Unknown]
